FAERS Safety Report 8850611 (Version 1)
Quarter: 2012Q4

REPORT INFORMATION
  Report Type: 
  Country: US (occurrence: US)
  Receive Date: 20121019
  Receipt Date: 20121019
  Transmission Date: 20130627
  Serious: No
  Sender: FDA-Public Use
  Company Number: US-ASTRAZENECA-2012SE78364

PATIENT
  Age: 67 Year
  Sex: Female

DRUGS (13)
  1. CAPRELSA [Suspect]
     Route: 048
     Dates: start: 20120926
  2. ATENOLOL [Concomitant]
  3. DEXAMETHASONE [Concomitant]
  4. HUMULIN [Concomitant]
  5. JANUVIA [Concomitant]
  6. LACTULOSE [Concomitant]
  7. MEGSTROL [Concomitant]
  8. MORPHINE [Concomitant]
  9. OCTRIEOTIDE ACETATE [Concomitant]
  10. OXYCODONE [Concomitant]
  11. PANTOPRAZOLE [Concomitant]
  12. SIMVASTATIN [Concomitant]
  13. ZETIA [Concomitant]

REACTIONS (4)
  - Pain in extremity [Unknown]
  - Blister [Unknown]
  - Headache [Unknown]
  - Abdominal pain upper [Unknown]
